FAERS Safety Report 10029874 (Version 1)
Quarter: 2014Q1

REPORT INFORMATION
  Report Type: Spontaneous
  Country: IT (occurrence: None)
  Receive Date: 20140304
  Receipt Date: 20140304
  Transmission Date: 20141002
  Serious: Yes (Other)
  Sender: FDA-Public Use
  Company Number: IG002084

PATIENT
  Age: 56 Year
  Sex: Female

DRUGS (2)
  1. FLEBOGAMMA [Suspect]
     Indication: HYPOGAMMAGLOBULINAEMIA
     Route: 042
     Dates: start: 20140214, end: 20140214
  2. URBASON /00049601/ [Concomitant]

REACTIONS (2)
  - Vision blurred [None]
  - Rash [None]
